FAERS Safety Report 5517924-4 (Version None)
Quarter: 2007Q4

REPORT INFORMATION
  Report Type: 
  Country: None (occurrence: None)
  Receive Date: 20071107
  Receipt Date: 20070708
  Transmission Date: 20080405
  Serious: Yes (Life-Threatening, Other)
  Sender: FDA-Public Use
  Company Number: WAES 0707USA01128

PATIENT
  Age: 56 Year
  Sex: Male
  Weight: 105.6881 kg

DRUGS (5)
  1. JANUMET [Suspect]
     Indication: TYPE 2 DIABETES MELLITUS
     Dosage: 500 MG/50 MG/BID/PO
     Route: 048
     Dates: start: 20070614, end: 20070701
  2. ALTACE [Concomitant]
  3. AVAPRO [Concomitant]
  4. PRAVACHOL [Concomitant]
  5. ASPIRIN [Concomitant]

REACTIONS (1)
  - ANGIOEDEMA [None]
